FAERS Safety Report 25615609 (Version 1)
Quarter: 2025Q3

REPORT INFORMATION
  Report Type: Spontaneous
  Country: US (occurrence: US)
  Receive Date: 20250729
  Receipt Date: 20250729
  Transmission Date: 20251020
  Serious: Yes (Other)
  Sender: INTRA-CELLULAR THERAPIES
  Company Number: US-INTRA-CELLULAR THERAPIES, INC.-2025ICT01364

PATIENT
  Age: 4 Decade
  Sex: Female

DRUGS (4)
  1. CAPLYTA [Suspect]
     Active Substance: LUMATEPERONE
     Indication: Bipolar disorder
  2. CAPLYTA [Suspect]
     Active Substance: LUMATEPERONE
     Indication: Bipolar I disorder
  3. CAPLYTA [Suspect]
     Active Substance: LUMATEPERONE
     Indication: Psychotic disorder
  4. OLANZAPINE [Concomitant]
     Active Substance: OLANZAPINE

REACTIONS (2)
  - Psychotic disorder [Unknown]
  - Hypomania [Unknown]
